FAERS Safety Report 11083639 (Version 1)
Quarter: 2015Q2

REPORT INFORMATION
  Report Type: Spontaneous
  Country: JP (occurrence: JP)
  Receive Date: 20150501
  Receipt Date: 20150501
  Transmission Date: 20150821
  Serious: Yes (Hospitalization)
  Sender: FDA-Public Use
  Company Number: PHHY2015JP052436

PATIENT
  Age: 75 Year
  Sex: Male

DRUGS (4)
  1. RIVASTACH [Suspect]
     Active Substance: RIVASTIGMINE
     Indication: DEMENTIA ALZHEIMER^S TYPE
     Dosage: 1.9MG/24 HOURS/4.5 MG BASE ONCE A DAY
     Route: 062
     Dates: start: 2014, end: 2014
  2. RIVASTACH [Suspect]
     Active Substance: RIVASTIGMINE
     Dosage: 4.6 MG/24 HOURS /9 MG BASE ONCE A DAY
     Route: 062
     Dates: start: 2014, end: 2014
  3. RIVASTACH [Suspect]
     Active Substance: RIVASTIGMINE
     Dosage: 1.9MG/24 HOURS/4.5 MG BASE ONCE A DAY
     Route: 062
     Dates: start: 201503
  4. RIVASTACH [Suspect]
     Active Substance: RIVASTIGMINE
     Dosage: 4.6 MG/24 HOURS /9 MG BASE ONCE A DAY
     Route: 062

REACTIONS (1)
  - Pneumonia aspiration [Not Recovered/Not Resolved]

NARRATIVE: CASE EVENT DATE: 20150413
